FAERS Safety Report 25587839 (Version 1)
Quarter: 2025Q3

REPORT INFORMATION
  Report Type: Spontaneous
  Country: EU (occurrence: EU)
  Receive Date: 20250721
  Receipt Date: 20250721
  Transmission Date: 20251020
  Serious: Yes (Other)
  Sender: TEVA
  Company Number: None

PATIENT
  Age: 65 Year
  Sex: Male
  Weight: 85 kg

DRUGS (3)
  1. LAMOTRIGINE [Suspect]
     Active Substance: LAMOTRIGINE
     Indication: Epilepsy
     Dosage: 200 MORNING 100 LUNCH 50 EVENING, LAMOTRIGINE ACTAVIS
     Route: 065
     Dates: start: 2019
  2. LEVOTHYROXINE SODIUM [Concomitant]
     Active Substance: LEVOTHYROXINE SODIUM
     Indication: Product used for unknown indication
  3. WARFARIN SODIUM [Concomitant]
     Active Substance: WARFARIN SODIUM
     Indication: Product used for unknown indication
     Dates: start: 2000

REACTIONS (1)
  - Basal cell carcinoma [Unknown]

NARRATIVE: CASE EVENT DATE: 20240101
